FAERS Safety Report 5134547-X (Version None)
Quarter: 2006Q4

REPORT INFORMATION
  Report Type: 
  Country: None (occurrence: None)
  Receive Date: 20061019
  Receipt Date: 20061005
  Transmission Date: 20070319
  Serious: Yes (Hospitalization)
  Sender: FDA-Public Use
  Company Number: 163-C5013-05110406

PATIENT
  Age: 54 Year
  Sex: Female
  Weight: 43.9989 kg

DRUGS (10)
  1. REVLIMID [Suspect]
     Indication: MULTIPLE MYELOMA
     Dosage: SEE IMAGE
     Route: 048
     Dates: start: 20051104, end: 20051125
  2. REVLIMID [Suspect]
     Indication: MULTIPLE MYELOMA
     Dosage: SEE IMAGE
     Route: 048
     Dates: start: 20051202, end: 20051222
  3. REVLIMID [Suspect]
     Indication: MULTIPLE MYELOMA
     Dosage: SEE IMAGE
     Route: 048
     Dates: start: 20051231
  4. DEXAMETHASONE TAB [Suspect]
     Indication: MULTIPLE MYELOMA
     Dosage: 40 MG, DAYS 1-4, 9-12, AND 17-20, ORAL
     Route: 048
     Dates: start: 20051104
  5. NEURONTIN [Concomitant]
  6. SYNTHROID [Concomitant]
  7. POTASSIUM (POTASSIUM) [Concomitant]
  8. NEUPOGEN [Concomitant]
  9. DIPYRIDAMOLE [Concomitant]
  10. RED BLOOD CELLS [Concomitant]

REACTIONS (7)
  - CHILLS [None]
  - CLAVICLE FRACTURE [None]
  - LYMPHADENOPATHY [None]
  - METASTASES TO CENTRAL NERVOUS SYSTEM [None]
  - MUSCULOSKELETAL PAIN [None]
  - PANCYTOPENIA [None]
  - TUMOUR ASSOCIATED FEVER [None]
